FAERS Safety Report 8304225-4 (Version None)
Quarter: 2012Q2

REPORT INFORMATION
  Report Type: 
  Country: None (occurrence: None)
  Receive Date: 20120423
  Receipt Date: 20120412
  Transmission Date: 20120825
  Serious: Yes (Other)
  Sender: FDA-Public Use
  Company Number: US-UCBSA-055456

PATIENT
  Age: 59 Year
  Sex: Male

DRUGS (2)
  1. METHOTREXATE [Interacting]
     Indication: BARRETT'S OESOPHAGUS
     Route: 030
  2. PANTOPRAZOLE [Suspect]
     Indication: BARRETT'S OESOPHAGUS

REACTIONS (3)
  - TOXICITY TO VARIOUS AGENTS [None]
  - MYALGIA [None]
  - DRUG INTERACTION [None]
